FAERS Safety Report 7440154-6 (Version None)
Quarter: 2011Q2

REPORT INFORMATION
  Report Type: 
  Country: None (occurrence: None)
  Receive Date: 20110427
  Receipt Date: 20110413
  Transmission Date: 20111010
  Serious: Yes (Other)
  Sender: FDA-Public Use
  Company Number: US-CELGENEUS-163-20785-11021601

PATIENT
  Sex: Male

DRUGS (6)
  1. TERCONAZOLE [Concomitant]
     Route: 065
     Dates: start: 20110309, end: 20110312
  2. PRENATAL VITAMINS [Concomitant]
     Indication: PREGNANCY
     Route: 065
     Dates: start: 20110111
  3. THALOMID [Suspect]
     Dosage: 200 MILLIGRAM
     Route: 048
     Dates: start: 20101001
  4. THALOMID [Suspect]
     Dosage: 200-400MG
     Route: 048
     Dates: start: 20100601
  5. AFLURIA [Concomitant]
     Route: 065
     Dates: start: 20110111, end: 20110111
  6. THALOMID [Suspect]
     Dosage: 400 MILLIGRAM
     Route: 048
     Dates: start: 20090904

REACTIONS (1)
  - PREGNANCY OF PARTNER [None]
